FAERS Safety Report 10103542 (Version 2)
Quarter: 2014Q2

REPORT INFORMATION
  Report Type: Spontaneous
  Country: US (occurrence: US)
  Receive Date: 20140424
  Receipt Date: 20140620
  Transmission Date: 20141212
  Serious: No
  Sender: FDA-Public Use
  Company Number: US-BRISTOL-MYERS SQUIBB COMPANY-20544615

PATIENT
  Age: 71 Year
  Sex: Female
  Weight: 104.31 kg

DRUGS (14)
  1. ELIQUIS [Suspect]
     Route: 048
     Dates: start: 20140312
  2. OMEPRAZOLE [Concomitant]
  3. LIPITOR [Concomitant]
  4. DIOVAN [Concomitant]
  5. CLONIDINE [Concomitant]
  6. SOTALOL [Concomitant]
  7. DILTIAZEM HCL [Concomitant]
  8. POTASSIUM CHLORIDE [Concomitant]
  9. TRIAMTERENE + HCTZ [Concomitant]
     Dosage: 1DF=37.5/25 UNITS NOS
  10. ASPIRIN [Concomitant]
  11. VITAMIN D [Concomitant]
  12. FISH OIL [Concomitant]
  13. LUTEIN [Concomitant]
  14. TYLENOL [Concomitant]

REACTIONS (1)
  - Gravitational oedema [Not Recovered/Not Resolved]
